FAERS Safety Report 4911263-8 (Version None)
Quarter: 2006Q1

REPORT INFORMATION
  Report Type: 
  Country: None (occurrence: None)
  Receive Date: 20060214
  Receipt Date: 20060109
  Transmission Date: 20060701
  Serious: Yes (Disabling, Other)
  Sender: FDA-Public Use
  Company Number: GB-GILEAD-2006-0009123

PATIENT
  Sex: Male
  Weight: 35 kg

DRUGS (10)
  1. VIREAD [Suspect]
     Indication: HIV INFECTION
     Route: 048
     Dates: start: 20050204, end: 20051202
  2. VIREAD [Suspect]
     Indication: CD4 LYMPHOCYTES DECREASED
  3. DIDANOSINE [Suspect]
     Indication: HIV INFECTION
     Route: 048
     Dates: start: 20050204, end: 20051202
  4. DIDANOSINE [Suspect]
     Indication: CD4 LYMPHOCYTES DECREASED
  5. LOPINAVIR W/RITONAVIR [Concomitant]
     Indication: HIV INFECTION
     Route: 048
     Dates: start: 20050715, end: 20051203
  6. LOPINAVIR W/RITONAVIR [Concomitant]
     Indication: CD4 LYMPHOCYTES DECREASED
  7. INDINIVIR SULFATE [Concomitant]
     Indication: HIV INFECTION
  8. INDINIVIR SULFATE [Concomitant]
     Indication: CD4 LYMPHOCYTES DECREASED
  9. REYATAZ [Concomitant]
     Indication: HIV INFECTION
     Route: 048
     Dates: start: 20050204, end: 20051202
  10. REYATAZ [Concomitant]
     Indication: CD4 LYMPHOCYTES DECREASED

REACTIONS (15)
  - ABDOMINAL PAIN [None]
  - BLOOD CREATININE INCREASED [None]
  - BLOOD PHOSPHORUS DECREASED [None]
  - CD4 LYMPHOCYTES DECREASED [None]
  - DEHYDRATION [None]
  - FATIGUE [None]
  - GLYCOSURIA [None]
  - HAEMATURIA [None]
  - NAUSEA [None]
  - NEPHROPATHY TOXIC [None]
  - POLYURIA [None]
  - PROTEINURIA [None]
  - RENAL TUBULAR DISORDER [None]
  - THERAPY NON-RESPONDER [None]
  - VOMITING [None]
